FAERS Safety Report 10412029 (Version 1)
Quarter: 2014Q2

REPORT INFORMATION
  Report Type: Spontaneous
  Country: US (occurrence: None)
  Receive Date: 20140604
  Receipt Date: 20140604
  Transmission Date: 20141212
  Serious: Yes (Hospitalization)
  Sender: FDA-Public Use
  Company Number: 163-POMAL-14031875

PATIENT
  Age: 58 Year
  Sex: Female

DRUGS (16)
  1. POMALYST [Suspect]
     Indication: PLASMA CELL MYELOMA
     Dosage: 4MG, 1 IN 1D, PO
     Route: 048
     Dates: start: 201306
  2. CARFILZOMIB [Concomitant]
  3. DEXAMETHASONE [Concomitant]
  4. ESOMEPRAZOLE [Concomitant]
  5. FILGRASTIM [Concomitant]
  6. LORAZEPAM [Concomitant]
  7. ONDANSETRON [Concomitant]
  8. OXYCODONE [Concomitant]
  9. PILOCARPINE [Concomitant]
  10. POTASSIUM CHLORIDE [Concomitant]
  11. RIVAROXABAN [Concomitant]
  12. VALACYCLOVIR [Concomitant]
  13. ZOMETA (ZOLEDRONIC ACID) [Concomitant]
  14. BACTRIM [Concomitant]
  15. ACYCLOVIR [Concomitant]
  16. FENTANYL [Concomitant]

REACTIONS (1)
  - Febrile neutropenia [None]
